FAERS Safety Report 25412586 (Version 1)
Quarter: 2025Q2

REPORT INFORMATION
  Report Type: Spontaneous
  Country: BE (occurrence: BE)
  Receive Date: 20250609
  Receipt Date: 20250609
  Transmission Date: 20250716
  Serious: Yes (Other)
  Sender: PFIZER
  Company Number: BE-009507513-2284303

PATIENT
  Age: 70 Year
  Sex: Female

DRUGS (6)
  1. GEMCITABINE HYDROCHLORIDE [Suspect]
     Active Substance: GEMCITABINE HYDROCHLORIDE
     Indication: Non-small cell lung cancer
     Dates: start: 202405
  2. CISPLATIN [Suspect]
     Active Substance: CISPLATIN
     Indication: Non-small cell lung cancer
     Dates: start: 202405
  3. PEMBROLIZUMAB [Suspect]
     Active Substance: PEMBROLIZUMAB
     Indication: Non-small cell lung cancer
     Dates: start: 202405, end: 2024
  4. PEMBROLIZUMAB [Suspect]
     Active Substance: PEMBROLIZUMAB
     Dates: start: 202408, end: 202505
  5. ATENOLOL [Concomitant]
     Active Substance: ATENOLOL
     Dosage: 5 MG, 1X/DAY
  6. SIMVASTATIN [Concomitant]
     Active Substance: SIMVASTATIN
     Dosage: 20 MG, 1X/DAY

REACTIONS (13)
  - Polyserositis [Unknown]
  - Necrosis [Unknown]
  - Pericardial effusion [Unknown]
  - Ascites [Unknown]
  - Weight increased [Recovering/Resolving]
  - General physical health deterioration [Unknown]
  - Oedema peripheral [Recovering/Resolving]
  - Pleural effusion [Unknown]
  - Eructation [Unknown]
  - Constipation [Unknown]
  - Abdominal pain upper [Unknown]
  - Regurgitation [Unknown]
  - Enteritis [Unknown]

NARRATIVE: CASE EVENT DATE: 20240701
